FAERS Safety Report 24224286 (Version 1)
Quarter: 2024Q3

REPORT INFORMATION
  Report Type: Report from Study
  Country: EG (occurrence: EG)
  Receive Date: 20240819
  Receipt Date: 20240819
  Transmission Date: 20241016
  Serious: Yes (Life-Threatening)
  Sender: SANDOZ
  Company Number: GB-SANDOZ-SDZ2023EG005886

PATIENT
  Age: 41 Year
  Sex: Male
  Weight: 102 kg

DRUGS (11)
  1. HYRIMOZ [Suspect]
     Active Substance: ADALIMUMAB-ADAZ
     Indication: Behcet^s syndrome
     Dosage: 40 MG EVERY OTHER WEEK
     Route: 058
     Dates: start: 202306
  2. SOLU-MEDROL [Suspect]
     Active Substance: METHYLPREDNISOLONE SODIUM SUCCINATE
     Indication: Behcet^s syndrome
     Dosage: MIXED WITH REMICADE AND TAKEN EVERY 2 MONTHS FOR 2 OR 3 HOURSY
     Route: 042
  3. AZATHIOPRINE [Concomitant]
     Active Substance: AZATHIOPRINE
     Indication: Behcet^s syndrome
     Dosage: 50 MG, TID
     Route: 048
     Dates: start: 2023
  4. VITAMINS [Concomitant]
     Active Substance: VITAMINS
     Indication: Vitamin D deficiency
     Dosage: 1 DF, QW
     Route: 030
     Dates: start: 202406
  5. MODAFINIL [Concomitant]
     Active Substance: MODAFINIL
     Indication: Disturbance in attention
     Dosage: ONE TABLET AFTER BREAKFAST
     Route: 048
  6. DONAZIL [Concomitant]
     Indication: Disturbance in attention
     Dosage: ONE TABLET AFTER BREAKFAST + ONE TABLET AFTER DINNER,
     Route: 048
  7. NEXIUM [Concomitant]
     Active Substance: ESOMEPRAZOLE MAGNESIUM
     Indication: Gastrooesophageal reflux disease
     Dosage: TABLET IN THE MORNING BEFORE EATING
     Route: 048
  8. NEXIUM [Concomitant]
     Active Substance: ESOMEPRAZOLE MAGNESIUM
     Indication: Dyspnoea
  9. NEXIUM [Concomitant]
     Active Substance: ESOMEPRAZOLE MAGNESIUM
     Indication: Flatulence
  10. FLUOXETINE HYDROCHLORIDE [Concomitant]
     Active Substance: FLUOXETINE HYDROCHLORIDE
     Indication: Disturbance in attention
     Dosage: 20 MG, QD ONE TABLET AFTER LUNCH
     Route: 048
  11. VITAMIN D [Concomitant]
     Active Substance: VITAMIN D NOS
     Indication: Vitamin D deficiency
     Dosage: 1 DF, QW
     Route: 048
     Dates: start: 2024, end: 2024

REACTIONS (8)
  - Weight increased [Not Recovered/Not Resolved]
  - Balance disorder [Not Recovered/Not Resolved]
  - Disturbance in attention [Not Recovered/Not Resolved]
  - Nervousness [Not Recovered/Not Resolved]
  - Tongue discomfort [Not Recovered/Not Resolved]
  - Loss of personal independence in daily activities [Not Recovered/Not Resolved]
  - Off label use [Unknown]
  - Product dose omission issue [Unknown]

NARRATIVE: CASE EVENT DATE: 20230601
